FAERS Safety Report 24020553 (Version 2)
Quarter: 2024Q3

REPORT INFORMATION
  Report Type: Report from Study
  Country: ES (occurrence: ES)
  Receive Date: 20240627
  Receipt Date: 20240712
  Transmission Date: 20241016
  Serious: Yes (Death, Hospitalization)
  Sender: TEVA
  Company Number: ES-TEVA-VS-3213068

PATIENT
  Age: 71 Year

DRUGS (2)
  1. CIPROFLOXACIN [Suspect]
     Active Substance: CIPROFLOXACIN
     Indication: Bacteraemia
     Route: 065
  2. CEFIDEROCOL [Suspect]
     Active Substance: CEFIDEROCOL
     Indication: Bacteraemia
     Dosage: IV INFUSION DILUTED IN 100 ML OF NORMAL SALINE SOLUTION
     Route: 050

REACTIONS (2)
  - Drug ineffective [Fatal]
  - Drug resistance [Fatal]
